FAERS Safety Report 12297226 (Version 1)
Quarter: 2016Q2

REPORT INFORMATION
  Report Type: Other
  Country: US (occurrence: US)
  Receive Date: 20160422
  Receipt Date: 20160422
  Transmission Date: 20160815
  Serious: No
  Sender: FDA-Public Use
  Company Number: US-TRIS PHARMA, INC.-1050889

PATIENT
  Sex: Female

DRUGS (1)
  1. KARBINAL ER [Suspect]
     Active Substance: CARBINOXAMINE MALEATE
     Indication: HYPERSENSITIVITY
     Route: 048

REACTIONS (2)
  - Hypervigilance [Recovered/Resolved]
  - Somnolence [Recovered/Resolved]
